FAERS Safety Report 17200123 (Version 1)
Quarter: 2019Q4

REPORT INFORMATION
  Report Type: Spontaneous
  Country: UG (occurrence: UG)
  Receive Date: 20191226
  Receipt Date: 20191226
  Transmission Date: 20200122
  Serious: Yes (Other)
  Sender: FDA-Public Use
  Company Number: UG-CIPLA LTD.-2019UG08278

PATIENT

DRUGS (3)
  1. DARUNAVIR [Concomitant]
     Active Substance: DARUNAVIR
     Indication: HERPES SIMPLEX
     Dosage: UNK, BD-BOOSTED
     Route: 065
  2. RALTEGRAVIR. [Concomitant]
     Active Substance: RALTEGRAVIR
     Indication: HERPES SIMPLEX
     Dosage: UNK
     Route: 065
  3. ACYCLOVIR. [Suspect]
     Active Substance: ACYCLOVIR
     Indication: HERPES SIMPLEX
     Dosage: UNK, HIGH-DOSE
     Route: 065

REACTIONS (3)
  - Drug resistance [Recovered/Resolved]
  - Kaposi^s sarcoma [Unknown]
  - Nephropathy [Unknown]
